FAERS Safety Report 5704454-X (Version None)
Quarter: 2008Q2

REPORT INFORMATION
  Report Type: 
  Country: None (occurrence: None)
  Receive Date: 20080411
  Receipt Date: 20080411
  Transmission Date: 20081010
  Serious: No
  Sender: FDA-Public Use
  Company Number: None

PATIENT
  Age: 4 Year
  Sex: Female
  Weight: 21.7727 kg

DRUGS (1)
  1. SINGULAIR [Suspect]
     Indication: ASTHMA
     Dosage: 1 PILL DAILY PO
     Route: 048
     Dates: start: 20061201, end: 20080408

REACTIONS (9)
  - AGGRESSION [None]
  - FEAR [None]
  - HYPERHIDROSIS [None]
  - INSOMNIA [None]
  - NIGHTMARE [None]
  - PSYCHOMOTOR HYPERACTIVITY [None]
  - RESPIRATORY DISORDER [None]
  - SELF INJURIOUS BEHAVIOUR [None]
  - SKIN HAEMORRHAGE [None]
